FAERS Safety Report 10161203 (Version 2)
Quarter: 2014Q2

REPORT INFORMATION
  Report Type: Spontaneous
  Country: US (occurrence: US)
  Receive Date: 20140508
  Receipt Date: 20140508
  Transmission Date: 20141212
  Serious: Yes (Other)
  Sender: FDA-Public Use
  Company Number: US-RB-058443-13

PATIENT
  Age: 31 Year
  Sex: Female
  Weight: 86 kg

DRUGS (4)
  1. BUPRENORPHINE GENERIC [Suspect]
     Indication: DRUG DEPENDENCE
     Dosage: CUTTING; TAKING ONE AND A HALF TABLET DAILY
     Route: 048
     Dates: start: 20130618, end: 20140219
  2. EFFEXOR [Concomitant]
     Indication: OBSESSIVE-COMPULSIVE DISORDER
     Route: 065
     Dates: start: 2004
  3. SERAX [Concomitant]
     Indication: ANXIETY
     Route: 065
     Dates: start: 2004, end: 201402
  4. ZANTAC [Concomitant]
     Indication: DYSPEPSIA
     Dosage: DOSING DETAILS UNKNOWN
     Route: 065
     Dates: start: 201309

REACTIONS (6)
  - Maternal exposure during pregnancy [Recovered/Resolved]
  - Wrong technique in drug usage process [Recovered/Resolved]
  - Incorrect route of drug administration [Recovered/Resolved]
  - Gestational diabetes [Recovered/Resolved]
  - Premature labour [Recovered/Resolved]
  - Premature delivery [Recovered/Resolved]
